FAERS Safety Report 4642030-0 (Version None)
Quarter: 2005Q2

REPORT INFORMATION
  Report Type: 
  Country: None (occurrence: None)
  Receive Date: 20050420
  Receipt Date: 20050407
  Transmission Date: 20051028
  Serious: Yes (Other)
  Sender: FDA-Public Use
  Company Number: 2005057117

PATIENT
  Age: 80 Year
  Sex: Female
  Weight: 68.0396 kg

DRUGS (9)
  1. BEXTRA [Suspect]
     Indication: ARTHRITIS
     Dosage: 10 MG (10 MG, 1 IN 1 D)
     Dates: end: 20050406
  2. CELEBREX [Suspect]
     Indication: ARTHRITIS
     Dosage: SEE IMAGE
  3. WARFARIN SODIUM [Concomitant]
  4. VICODIN [Concomitant]
  5. FUROSEMIDE [Concomitant]
  6. SPIRONOLACTONE [Concomitant]
  7. TOLTERODINE TARTRATE [Concomitant]
  8. CENTRUM SILVER (ASCORBIC ACID, CALCIUM, MINERALS NOS, RETINOL, TOCOPHE [Concomitant]
  9. ASCORBIC ACID/COPPER/ RETINOL/ OCOPHEROL/ZINC (ASCORBIC ACID, COPPER, [Concomitant]

REACTIONS (5)
  - BLADDER OPERATION [None]
  - DRUG INEFFECTIVE [None]
  - HIP ARTHROPLASTY [None]
  - OEDEMA PERIPHERAL [None]
  - PRURITUS GENERALISED [None]
